FAERS Safety Report 17863117 (Version 4)
Quarter: 2020Q2

REPORT INFORMATION
  Report Type: Report from Study
  Country: JP (occurrence: JP)
  Receive Date: 20200604
  Receipt Date: 20200626
  Transmission Date: 20200714
  Serious: Yes (Hospitalization)
  Sender: FDA-Public Use
  Company Number: JP-EISAI MEDICAL RESEARCH-EC-2020-075568

PATIENT
  Age: 78 Year
  Sex: Female
  Weight: 40.35 kg

DRUGS (18)
  1. PENTAZOCINE [Concomitant]
     Active Substance: PENTAZOCINE
     Dates: start: 20200514, end: 20200514
  2. CELECOXIB. [Concomitant]
     Active Substance: CELECOXIB
     Dates: start: 202003
  3. FEXOFENADINE HYDROCHLORIDE. [Concomitant]
     Active Substance: FEXOFENADINE HYDROCHLORIDE
     Dates: start: 202003
  4. LENVATINIB [Suspect]
     Active Substance: LENVATINIB
     Indication: TRANSITIONAL CELL CARCINOMA
     Route: 048
     Dates: start: 20200513
  5. TRIAZOLAM. [Concomitant]
     Active Substance: TRIAZOLAM
     Dates: start: 202003, end: 20200601
  6. NITRAZEPAM [Concomitant]
     Active Substance: NITRAZEPAM
     Dates: start: 202003, end: 20200601
  7. LIMAPROST ALFADEX [Concomitant]
     Active Substance: LIMAPROST
     Dates: start: 202003
  8. RANIBIZUMAB. [Concomitant]
     Active Substance: RANIBIZUMAB
     Dates: start: 201605
  9. SENNOSIDES. [Concomitant]
     Active Substance: SENNOSIDES
     Dates: start: 202003
  10. LOXOPROFEN SODIUM [Concomitant]
     Active Substance: LOXOPROFEN SODIUM
     Dates: start: 20200511
  11. DAI-KENCHU-TO [Concomitant]
     Active Substance: MALTOSE
     Dates: start: 20200101
  12. LEVOTHYROXINE SODIUM. [Concomitant]
     Active Substance: LEVOTHYROXINE SODIUM
     Dates: start: 20200520, end: 20200526
  13. PEMBROLIZUMAB. [Suspect]
     Active Substance: PEMBROLIZUMAB
     Indication: TRANSITIONAL CELL CARCINOMA
     Route: 041
     Dates: start: 20200513, end: 20200513
  14. LEVOFLOXACIN. [Concomitant]
     Active Substance: LEVOFLOXACIN
     Dates: start: 20200518, end: 20200518
  15. BENOXINATE HYDROCHLORIDE [Concomitant]
     Active Substance: BENOXINATE HYDROCHLORIDE
     Dates: start: 20200518, end: 20200518
  16. MECOBALAMIN [Concomitant]
     Active Substance: METHYLCOBALAMIN
     Dates: start: 202003
  17. ACETAMINOPHEN. [Concomitant]
     Active Substance: ACETAMINOPHEN
     Dates: start: 20200415
  18. NIFEDIPINE. [Concomitant]
     Active Substance: NIFEDIPINE
     Dates: start: 20200520

REACTIONS (1)
  - Fatigue [Not Recovered/Not Resolved]

NARRATIVE: CASE EVENT DATE: 20200527
